FAERS Safety Report 4647110-1 (Version None)
Quarter: 2005Q2

REPORT INFORMATION
  Report Type: 
  Country: None (occurrence: None)
  Receive Date: 20050331
  Receipt Date: 20050120
  Transmission Date: 20051028
  Serious: No
  Sender: FDA-Public Use
  Company Number: 05P-163-0287694-00

PATIENT
  Age: 65 Year
  Sex: Female
  Weight: 72.5755 kg

DRUGS (6)
  1. HUMIRA [Suspect]
     Indication: RHEUMATOID ARTHRITIS
     Dosage: 40 MG, 1 IN 2 WK, SUBCUTANEOUS
     Route: 058
     Dates: start: 20030101, end: 20050111
  2. ATENOLOL [Concomitant]
  3. FOLIC ACID [Concomitant]
  4. FLUOXETINE [Concomitant]
  5. METHOTREXATE SODIUM [Concomitant]
  6. OMEPRAZOLE [Concomitant]

REACTIONS (4)
  - DIZZINESS [None]
  - MOTION SICKNESS [None]
  - PRURITUS [None]
  - UPPER RESPIRATORY TRACT INFECTION [None]
